FAERS Safety Report 6860215-X (Version None)
Quarter: 2010Q3

REPORT INFORMATION
  Report Type: 
  Country: None (occurrence: None)
  Receive Date: 20100719
  Receipt Date: 20100719
  Transmission Date: 20110219
  Serious: Yes (Hospitalization)
  Sender: FDA-Public Use
  Company Number: None

PATIENT
  Sex: Male
  Weight: 71 kg

DRUGS (1)
  1. CAMPATH [Suspect]
     Dosage: 30 MG

REACTIONS (5)
  - HYPOTENSION [None]
  - PANCYTOPENIA [None]
  - PNEUMONIA [None]
  - PSEUDOMONAS TEST POSITIVE [None]
  - SEPSIS [None]
